FAERS Safety Report 17533150 (Version 4)
Quarter: 2020Q2

REPORT INFORMATION
  Report Type: Spontaneous
  Country: AR (occurrence: AR)
  Receive Date: 20200312
  Receipt Date: 20200421
  Transmission Date: 20200713
  Serious: Yes (Other)
  Sender: FDA-Public Use
  Company Number: AR-MYLANLABS-2020M1026214

PATIENT
  Age: 12 Year
  Sex: Male

DRUGS (1)
  1. LAPENAX [Suspect]
     Active Substance: CLOZAPINE
     Indication: PRODUCT USED FOR UNKNOWN INDICATION
     Dosage: UNK
     Dates: start: 20180927

REACTIONS (11)
  - Hypochromasia [Unknown]
  - Red blood cell count decreased [Not Recovered/Not Resolved]
  - Leukopenia [Recovered/Resolved]
  - Haematocrit decreased [Recovering/Resolving]
  - Monocyte count increased [Unknown]
  - Microcytosis [Unknown]
  - Mean cell haemoglobin decreased [Recovering/Resolving]
  - Neutropenia [Recovered/Resolved]
  - Haemoglobin decreased [Not Recovered/Not Resolved]
  - Mean cell volume decreased [Recovering/Resolving]
  - Eosinophil count decreased [Unknown]

NARRATIVE: CASE EVENT DATE: 20200305
